FAERS Safety Report 14351378 (Version 4)
Quarter: 2018Q1

REPORT INFORMATION
  Report Type: Spontaneous
  Country: US (occurrence: US)
  Receive Date: 20180104
  Receipt Date: 20180110
  Transmission Date: 20180509
  Serious: No
  Sender: FDA-Public Use
  Company Number: US-PFIZER INC-2017553559

PATIENT
  Age: 76 Year
  Sex: Female

DRUGS (28)
  1. CALAN SR [Suspect]
     Active Substance: VERAPAMIL HYDROCHLORIDE
     Dosage: UNK
  2. TAGAMET [Suspect]
     Active Substance: CIMETIDINE
     Dosage: UNK
  3. ESTINA [Suspect]
     Active Substance: EBASTINE
     Dosage: UNK
  4. ESIDRIX [Suspect]
     Active Substance: HYDROCHLOROTHIAZIDE
     Dosage: UNK
  5. TAGAMET HB [Suspect]
     Active Substance: CIMETIDINE
     Dosage: UNK
  6. ISOPTIN [Suspect]
     Active Substance: VERAPAMIL HYDROCHLORIDE
     Dosage: UNK
  7. HYDRODIURIL [Suspect]
     Active Substance: HYDROCHLOROTHIAZIDE
     Dosage: UNK
  8. ORETIC [Suspect]
     Active Substance: HYDROCHLOROTHIAZIDE
     Dosage: UNK
  9. CALAN [Suspect]
     Active Substance: VERAPAMIL HYDROCHLORIDE
     Dosage: UNK
  10. BACTRIM [Suspect]
     Active Substance: SULFAMETHOXAZOLE\TRIMETHOPRIM
     Dosage: UNK
  11. COMPRO [Suspect]
     Active Substance: PROCHLORPERAZINE
     Dosage: UNK
  12. TIKOSYN [Suspect]
     Active Substance: DOFETILIDE
     Dosage: 125 MG, 2X/DAY, (A.M., P.M. )
  13. VERELAN PM [Suspect]
     Active Substance: VERAPAMIL HYDROCHLORIDE
     Dosage: UNK
  14. NIZORAL [Suspect]
     Active Substance: KETOCONAZOLE
     Dosage: UNK
  15. XOLEGEL [Suspect]
     Active Substance: KETOCONAZOLE
     Dosage: UNK
  16. SULFATRIM [Suspect]
     Active Substance: SULFAMETHOXAZOLE\TRIMETHOPRIM
     Dosage: UNK
  17. COMPAZINE [Suspect]
     Active Substance: PROCHLORPERAZINE MALEATE
     Dosage: UNK
  18. COVERA-HS [Suspect]
     Active Substance: VERAPAMIL HYDROCHLORIDE
     Dosage: UNK
  19. PROLOPRIM [Suspect]
     Active Substance: TRIMETHOPRIM
     Dosage: UNK
  20. EZIDE [Suspect]
     Active Substance: HYDROCHLOROTHIAZIDE
     Dosage: UNK
  21. MICROZIDE [Suspect]
     Active Substance: HYDROCHLOROTHIAZIDE
     Dosage: UNK
  22. ISOPTIN SR [Suspect]
     Active Substance: VERAPAMIL HYDROCHLORIDE
     Dosage: UNK
  23. SEPTRA [Suspect]
     Active Substance: SULFAMETHOXAZOLE\TRIMETHOPRIM
     Dosage: UNK
  24. ZITHROMAX [Suspect]
     Active Substance: AZITHROMYCIN DIHYDRATE
     Dosage: UNK
  25. VERELAN [Suspect]
     Active Substance: VERAPAMIL HYDROCHLORIDE
     Dosage: UNK
  26. TARKA [Suspect]
     Active Substance: TRANDOLAPRIL\VERAPAMIL HYDROCHLORIDE
     Dosage: UNK
  27. TRIMPEX [Suspect]
     Active Substance: TRIMETHOPRIM
     Dosage: UNK
  28. MEGACE [Suspect]
     Active Substance: MEGESTROL ACETATE
     Dosage: UNK

REACTIONS (1)
  - No adverse event [Unknown]
